FAERS Safety Report 5922435-8 (Version None)
Quarter: 2008Q4

REPORT INFORMATION
  Report Type: 
  Country: None (occurrence: None)
  Receive Date: 20081008
  Receipt Date: 20080924
  Transmission Date: 20090506
  Serious: Yes (Other)
  Sender: FDA-Public Use
  Company Number: THYM-1000788

PATIENT
  Age: 66 Year
  Sex: Male

DRUGS (1)
  1. THYMOGLOBULIN [Suspect]
     Indication: RENAL TRANSPLANT
     Dosage: 75 MG, QD, INTRAVENOUS; 150 MG, QD, INTRAVENOUS, 100 MG, QD, INTRAVENOUS
     Route: 042
     Dates: start: 20080917, end: 20080923

REACTIONS (2)
  - HEART RATE ABNORMAL [None]
  - MYOCARDIAL INFARCTION [None]
